FAERS Safety Report 6217831-8 (Version None)
Quarter: 2009Q2

REPORT INFORMATION
  Report Type: 
  Country: None (occurrence: None)
  Receive Date: 20090608
  Receipt Date: 20070924
  Transmission Date: 20091009
  Serious: Yes (Other)
  Sender: FDA-Public Use
  Company Number: US-ASTRAZENECA-2006UW22943

PATIENT
  Age: 43 Year
  Sex: Female
  Weight: 81.6 kg

DRUGS (16)
  1. SEROQUEL [Suspect]
     Indication: SCHIZOPHRENIA
     Dosage: 700 MG TO 800 MG
     Route: 048
     Dates: end: 20040101
  2. SEROQUEL [Suspect]
     Indication: BIPOLAR DISORDER
     Dosage: 700 MG TO 800 MG
     Route: 048
     Dates: end: 20040101
  3. SEROQUEL [Suspect]
     Indication: DEPRESSION
     Dosage: 700 MG TO 800 MG
     Route: 048
     Dates: end: 20040101
  4. SEROQUEL [Suspect]
     Route: 048
     Dates: start: 20030904
  5. SEROQUEL [Suspect]
     Route: 048
     Dates: start: 20030904
  6. SEROQUEL [Suspect]
     Route: 048
     Dates: start: 20030904
  7. CLOZARIL [Concomitant]
     Dates: start: 20020101
  8. GEODON [Concomitant]
     Dates: start: 20000101, end: 20020101
  9. HALDOL [Concomitant]
  10. NAVANE [Concomitant]
  11. RISPERDAL [Concomitant]
  12. STELAZINE [Concomitant]
  13. THORAZINE [Concomitant]
     Dosage: 400-500 MG
  14. ZYPREXA [Concomitant]
  15. PROLIXIN [Concomitant]
     Dosage: 20 MG AT NIGHT, 1.5 MG MORNING
  16. KLONOPIN [Concomitant]
     Dosage: ONE MORNING AND ONE NIGHT

REACTIONS (4)
  - HEPATITIS [None]
  - HEPATITIS C [None]
  - TYPE 1 DIABETES MELLITUS [None]
  - TYPE 2 DIABETES MELLITUS [None]
